FAERS Safety Report 9529509 (Version 1)
Quarter: 2013Q3

REPORT INFORMATION
  Report Type: Report from Study
  Country: MX (occurrence: MX)
  Receive Date: 20130917
  Receipt Date: 20130917
  Transmission Date: 20140515
  Serious: Yes (Other)
  Sender: FDA-Public Use
  Company Number: PHHY2011MX87029

PATIENT
  Age: 78 Year
  Sex: Female

DRUGS (13)
  1. ALENDRONATO SODICO [Concomitant]
     Dosage: UNK
  2. LEVODOPA [Concomitant]
     Dosage: UNK
  3. CARBAMAZEPINE [Concomitant]
     Dosage: UNK
  4. LOSARTAN [Concomitant]
     Indication: HYPERTENSION
     Dosage: 2 DF, DAILY
  5. METOPROLOL [Concomitant]
     Indication: HYPERTENSION
     Dosage: 0.5 DF, UNK
  6. HYDROCHOROTHIAZIDE [Concomitant]
     Indication: HYPERTENSION
     Dosage: UNK
  7. MINIPRES [Concomitant]
  8. EXFORGE HCT [Suspect]
     Indication: HYPERTENSION
     Dosage: 1 DF, QD
     Route: 048
     Dates: start: 201109
  9. ASPIRIN ^BAYER^ [Concomitant]
     Dosage: UNK
  10. SERMION [Concomitant]
     Dosage: UNK
  11. SERTRALINE [Concomitant]
     Dosage: UNK
  12. OMEPRAZOLE [Concomitant]
     Dosage: UNK
  13. ALLOPURINOL [Concomitant]
     Dosage: UNK

REACTIONS (5)
  - Parkinson^s disease [Unknown]
  - Urine flow decreased [Not Recovered/Not Resolved]
  - Arrhythmia [Unknown]
  - Tachycardia [Unknown]
  - Local swelling [Unknown]
